FAERS Safety Report 21327389 (Version 5)
Quarter: 2022Q4

REPORT INFORMATION
  Report Type: Spontaneous
  Country: CA (occurrence: CA)
  Receive Date: 20220913
  Receipt Date: 20221114
  Transmission Date: 20230112
  Serious: Yes (Hospitalization, Other)
  Sender: FDA-Public Use
  Company Number: CA-CELLTRION INC.-2022CA010779

PATIENT

DRUGS (6)
  1. INFLECTRA [Suspect]
     Active Substance: INFLIXIMAB-DYYB
     Indication: Rheumatoid arthritis
     Dosage: 370 MG, EVERY 8 WEEKS
     Route: 042
     Dates: start: 20220707, end: 20220707
  2. INFLECTRA [Suspect]
     Active Substance: INFLIXIMAB-DYYB
     Dosage: 355 MG (5MG/KG) WEEKS 0,2,6, THEN Q8WEEKS
     Route: 042
     Dates: start: 20220816, end: 20220816
  3. INFLECTRA [Suspect]
     Active Substance: INFLIXIMAB-DYYB
     Dosage: 370 MG, (5MG/KG) WEEKS 0,2,6, THEN Q8WEEKS
     Route: 042
     Dates: start: 20221019
  4. INFLECTRA [Suspect]
     Active Substance: INFLIXIMAB-DYYB
     Dosage: 370 MG, (5MG/KG) WEEKS 0,2,6, THEN Q8WEEKS
     Route: 042
     Dates: start: 20221019
  5. PREDNISONE [Concomitant]
     Active Substance: PREDNISONE
     Dosage: 1 DF, 7.5 MG - FREQUENCY NOT AVAILABLE
     Route: 065
     Dates: start: 2007
  6. PREDNISONE [Concomitant]
     Active Substance: PREDNISONE
     Dosage: 7.5 MG, FREUQNECY NOT AVAILABLE
     Route: 065
     Dates: start: 2007

REACTIONS (12)
  - Appendicitis [Recovered/Resolved]
  - Drug effect less than expected [Unknown]
  - Off label use [Unknown]
  - Inappropriate schedule of product administration [Unknown]
  - Nausea [Recovered/Resolved]
  - Headache [Recovering/Resolving]
  - Pain [Unknown]
  - Blood pressure decreased [Unknown]
  - Paraesthesia [Recovered/Resolved]
  - Swelling [Recovered/Resolved]
  - Erythema [Recovered/Resolved]
  - Somnolence [Unknown]

NARRATIVE: CASE EVENT DATE: 20220707
